FAERS Safety Report 9577937 (Version 1)
Quarter: 2013Q4

REPORT INFORMATION
  Report Type: Spontaneous
  Country: US (occurrence: US)
  Receive Date: 20131001
  Receipt Date: 20131001
  Transmission Date: 20140711
  Serious: No
  Sender: FDA-Public Use
  Company Number: US-AMGEN-USASP2013011114

PATIENT
  Sex: Female

DRUGS (9)
  1. ENBREL [Suspect]
     Indication: PRODUCT USED FOR UNKNOWN INDICATION
     Dosage: 50 MG, QWK
     Route: 058
  2. MOBIC [Concomitant]
     Dosage: 15 MG, UNK
  3. EXFORGE [Concomitant]
     Dosage: 10-320 MG,UNK
  4. BYSTOLIC [Concomitant]
     Dosage: 10 MG, UNK
  5. METFORMIN [Concomitant]
     Dosage: 750 MG, UNK
  6. PRAVASTATIN [Concomitant]
     Dosage: 20 MG, UNK
  7. VITAMIN D                          /00107901/ [Concomitant]
     Dosage: 400 UNIT, UNK
  8. CALCIUM [Concomitant]
     Dosage: 500 UNK, UNK
  9. LEVOTHYROXIN [Concomitant]
     Dosage: 300 MUG, UNK

REACTIONS (1)
  - Injection site pruritus [Recovering/Resolving]
